FAERS Safety Report 5131065-X (Version None)
Quarter: 2006Q3

REPORT INFORMATION
  Report Type: 
  Country: None (occurrence: None)
  Receive Date: 20060829
  Receipt Date: 20060505
  Transmission Date: 20061208
  Serious: No
  Sender: FDA-Public Use
  Company Number: S06-USA-01724-01

PATIENT
  Age: 54 Year
  Sex: Male

DRUGS (7)
  1. CAMPRAL [Suspect]
     Indication: ALCOHOLISM
     Dosage: 666 MG BID PO
     Route: 048
     Dates: start: 20060402
  2. WELLBUTRIN [Concomitant]
  3. TRICOR [Concomitant]
  4. SYNTHROID [Concomitant]
  5. WATER PILL (NOS) [Concomitant]
  6. TYLENOL [Concomitant]
  7. MULTIVITAMIN (NOS) [Concomitant]

REACTIONS (1)
  - BARBITURATES POSITIVE [None]
